FAERS Safety Report 10308315 (Version 1)
Quarter: 2014Q2

REPORT INFORMATION
  Report Type: Spontaneous
  Country: AU (occurrence: None)
  Receive Date: 20140626
  Receipt Date: 20140626
  Transmission Date: 20141212
  Serious: Yes (Hospitalization)
  Sender: FDA-Public Use
  Company Number: GAM-206-14-AU

PATIENT
  Age: 67 Year
  Sex: Female

DRUGS (1)
  1. OCTAGAM (HUMAN NORMAL IMMUNOGLOBULIN (IV)) [Suspect]
     Indication: INCLUSION BODY MYOSITIS
     Route: 042
     Dates: start: 20140605, end: 20140605

REACTIONS (2)
  - Chills [None]
  - Hallucination [None]
